APPROVED DRUG PRODUCT: ARISTOCORT A
Active Ingredient: TRIAMCINOLONE ACETONIDE
Strength: 0.5% **Federal Register determination that product was not discontinued or withdrawn for safety or effectiveness reasons**
Dosage Form/Route: OINTMENT;TOPICAL
Application: A080745 | Product #003
Applicant: ASTELLAS PHARMA US INC
Approved: Approved Prior to Jan 1, 1982 | RLD: Yes | RS: No | Type: DISCN